FAERS Safety Report 5225123-9 (Version None)
Quarter: 2007Q1

REPORT INFORMATION
  Report Type: 
  Country: None (occurrence: None)
  Receive Date: 20070131
  Receipt Date: 20060629
  Transmission Date: 20070707
  Serious: Yes (Hospitalization)
  Sender: FDA-Public Use
  Company Number: AR-ELI_LILLY_AND_COMPANY-AR200604003818

PATIENT
  Age: 64 Year
  Sex: Female
  Weight: 79 kg

DRUGS (2)
  1. DULOXETINE HYDROCHLORIDE [Suspect]
     Indication: FIBROMYALGIA
     Dosage: UNK UNK, DAILY (1/D)
     Route: 048
     Dates: start: 20051213, end: 20060512
  2. PARACETAMOL [Concomitant]
     Indication: FIBROMYALGIA
     Dosage: UNK, AS NEEDED
     Dates: start: 20051204

REACTIONS (3)
  - DYSPHAGIA [None]
  - HYPERSENSITIVITY [None]
  - RASH [None]
